FAERS Safety Report 21045016 (Version 1)
Quarter: 2022Q3

REPORT INFORMATION
  Report Type: Report from Study
  Country: GB (occurrence: GB)
  Receive Date: 20220705
  Receipt Date: 20220705
  Transmission Date: 20221027
  Serious: Yes (Hospitalization)
  Sender: FDA-Public Use
  Company Number: GB-JNJFOC-20220655343

PATIENT
  Sex: Male

DRUGS (1)
  1. IBRUTINIB [Suspect]
     Active Substance: IBRUTINIB
     Indication: Hairy cell leukaemia
     Route: 048
     Dates: start: 20220302, end: 20220310

REACTIONS (5)
  - Neutropenic colitis [Unknown]
  - Cholecystitis [Unknown]
  - Pneumonia [Unknown]
  - Infection [Unknown]
  - Off label use [Unknown]
